FAERS Safety Report 5587406-2 (Version None)
Quarter: 2008Q1

REPORT INFORMATION
  Report Type: 
  Country: None (occurrence: None)
  Receive Date: 20080110
  Receipt Date: 20071121
  Transmission Date: 20080703
  Serious: Yes (Other)
  Sender: FDA-Public Use
  Company Number: US-BAYER-200712186BCC

PATIENT
  Age: 51 Year
  Sex: Female
  Weight: 82 kg

DRUGS (4)
  1. ALEVE [Suspect]
     Indication: BACK PAIN
     Dosage: TOTAL DAILY DOSE: 440 MG  UNIT DOSE: 220 MG
     Route: 048
     Dates: start: 20070603
  2. MOTRIN [Concomitant]
  3. SOLU-MEDROL [Concomitant]
     Route: 042
     Dates: start: 20070703
  4. PEPCID [Concomitant]
     Route: 042
     Dates: start: 20070703

REACTIONS (11)
  - ANAPHYLACTIC SHOCK [None]
  - ASTHENIA [None]
  - DEPRESSED LEVEL OF CONSCIOUSNESS [None]
  - DYSPNOEA [None]
  - EYE ROLLING [None]
  - GENERALISED ERYTHEMA [None]
  - HYPERSENSITIVITY [None]
  - HYPOTENSION [None]
  - PRURITUS GENERALISED [None]
  - RESPIRATORY DISORDER [None]
  - SYNCOPE [None]
